FAERS Safety Report 17397090 (Version 3)
Quarter: 2020Q1

REPORT INFORMATION
  Report Type: Spontaneous
  Country: US (occurrence: US)
  Receive Date: 20200210
  Receipt Date: 20200218
  Transmission Date: 20200409
  Serious: No
  Sender: FDA-Public Use
  Company Number: US-TEVA-2020-US-1181809

PATIENT
  Age: 59 Year
  Sex: Female

DRUGS (3)
  1. CLONAZEPAM TEVA [Suspect]
     Active Substance: CLONAZEPAM
     Indication: ANXIETY
     Dosage: 4 MILLIGRAM DAILY; STRENGTH UNKNOWN
     Route: 065
  2. CLONAZEPAM TEVA [Suspect]
     Active Substance: CLONAZEPAM
     Indication: PANIC ATTACK
  3. CLONAZEPAM TEVA [Suspect]
     Active Substance: CLONAZEPAM
     Indication: STRESS

REACTIONS (8)
  - Nausea [Unknown]
  - Anxiety [Unknown]
  - Wheezing [Unknown]
  - Insomnia [Unknown]
  - Rash [Unknown]
  - Panic attack [Unknown]
  - Urticaria [Unknown]
  - Asthma [Unknown]
